FAERS Safety Report 5369140-7 (Version None)
Quarter: 2007Q2

REPORT INFORMATION
  Report Type: 
  Country: None (occurrence: None)
  Receive Date: 20070625
  Receipt Date: 20070223
  Transmission Date: 20071010
  Serious: Yes (Life-Threatening)
  Sender: FDA-Public Use
  Company Number: US-ASTRAZENECA-2007UW02932

PATIENT
  Age: 23922 Day
  Sex: Male

DRUGS (12)
  1. CRESTOR [Suspect]
     Route: 048
     Dates: start: 20060801, end: 20070201
  2. TRUVADA [Suspect]
     Indication: HIV INFECTION
     Dosage: 1 TABLET DAILY
     Dates: start: 20061201, end: 20070201
  3. REYATAZ [Suspect]
     Indication: HIV INFECTION
     Dates: start: 20061201, end: 20070201
  4. NORVIR [Suspect]
     Indication: HIV INFECTION
     Dates: start: 20061201, end: 20070201
  5. ALTACE [Concomitant]
  6. ATENOLOL [Concomitant]
  7. AMBIEN [Concomitant]
  8. ASPIRIN [Concomitant]
  9. VITAMIN CAP [Concomitant]
  10. VITAMIN E [Concomitant]
  11. FISH OIL [Concomitant]
  12. LORAZEPAM [Concomitant]

REACTIONS (1)
  - BLOOD BILIRUBIN INCREASED [None]
